FAERS Safety Report 18835230 (Version 2)
Quarter: 2021Q2

REPORT INFORMATION
  Report Type: Report from Study
  Country: None (occurrence: US)
  Receive Date: 20210203
  Receipt Date: 20210415
  Transmission Date: 20210717
  Serious: Yes (Other)
  Sender: FDA-Public Use
  Company Number: US-ABBVIE-21K-163-3752700-00

PATIENT
  Sex: Male

DRUGS (1)
  1. HUMIRA [Suspect]
     Active Substance: ADALIMUMAB
     Indication: PSORIATIC ARTHROPATHY
     Route: 058
     Dates: end: 202004

REACTIONS (7)
  - Blood testosterone decreased [Not Recovered/Not Resolved]
  - Accident [Unknown]
  - Pain [Not Recovered/Not Resolved]
  - Blindness unilateral [Unknown]
  - Glaucoma [Unknown]
  - Intentional product misuse [Unknown]
  - Injection site pain [Not Recovered/Not Resolved]

NARRATIVE: CASE EVENT DATE: 2011
